FAERS Safety Report 16384631 (Version 1)
Quarter: 2019Q2

REPORT INFORMATION
  Report Type: Spontaneous
  Country: AU (occurrence: AU)
  Receive Date: 20190603
  Receipt Date: 20190603
  Transmission Date: 20190711
  Serious: Yes (Other)
  Sender: FDA-Public Use
  Company Number: AU-JNJFOC-20190537897

PATIENT
  Age: 68 Year
  Sex: Male

DRUGS (4)
  1. RISPERIDONE. [Suspect]
     Active Substance: RISPERIDONE
     Indication: SCHIZOPHRENIA
     Route: 048
  2. QUETIAPINE. [Concomitant]
     Active Substance: QUETIAPINE
     Route: 065
  3. RISPERDAL CONSTA [Suspect]
     Active Substance: RISPERIDONE
     Indication: SCHIZOPHRENIA
     Route: 030
  4. VALPROATE [Concomitant]
     Active Substance: VALPROIC ACID
     Route: 065

REACTIONS (5)
  - Vascular dementia [Unknown]
  - Paranoia [Unknown]
  - Aggression [Unknown]
  - Delusion of grandeur [Unknown]
  - Hallucination [Unknown]
